FAERS Safety Report 4823194-2 (Version None)
Quarter: 2005Q4

REPORT INFORMATION
  Report Type: 
  Country: None (occurrence: None)
  Receive Date: 20051027
  Receipt Date: 20050222
  Transmission Date: 20060501
  Serious: Yes (Hospitalization)
  Sender: FDA-Public Use
  Company Number: HQWYE559724FEB05

PATIENT
  Age: 74 Year
  Sex: Female
  Weight: 56.75 kg

DRUGS (1)
  1. PREMARIN [Suspect]
     Dosage: ORAL
     Route: 048
     Dates: start: 19920101, end: 19940801

REACTIONS (1)
  - BREAST CANCER [None]
